FAERS Safety Report 11176842 (Version 3)
Quarter: 2015Q3

REPORT INFORMATION
  Report Type: Report from Study
  Country: US (occurrence: US)
  Receive Date: 20150610
  Receipt Date: 20150728
  Transmission Date: 20151125
  Serious: Yes (Hospitalization)
  Sender: FDA-Public Use
  Company Number: US-BIOGENIDEC-2015BI077026

PATIENT
  Age: 41 Year
  Sex: Female

DRUGS (2)
  1. TYSABRI [Suspect]
     Active Substance: NATALIZUMAB
     Indication: MULTIPLE SCLEROSIS
     Route: 042
     Dates: start: 20071017
  2. TYSABRI [Suspect]
     Active Substance: NATALIZUMAB
     Indication: MULTIPLE SCLEROSIS
     Route: 042
     Dates: start: 201311

REACTIONS (5)
  - Procedural nausea [Recovered/Resolved]
  - Kidney infection [Recovered/Resolved]
  - Blood potassium decreased [Not Recovered/Not Resolved]
  - Uterine leiomyoma [Recovered/Resolved]
  - Post procedural diarrhoea [Recovered/Resolved]

NARRATIVE: CASE EVENT DATE: 20150330
